FAERS Safety Report 4575342-X (Version None)
Quarter: 2005Q1

REPORT INFORMATION
  Report Type: 
  Country: None (occurrence: None)
  Receive Date: 20050127
  Receipt Date: 20050127
  Transmission Date: 20050727
  Serious: Yes (Other)
  Sender: FDA-Public Use
  Company Number: None

PATIENT
  Sex: Female
  Weight: 58.9676 kg

DRUGS (3)
  1. ERYTHROMYCIN [Suspect]
     Indication: PERTUSSIS
     Dosage: 1
     Dates: start: 20050113, end: 20050113
  2. ASPIRIN [Concomitant]
  3. VERAPAMIL [Concomitant]

REACTIONS (2)
  - ABDOMINAL PAIN [None]
  - HAEMATOCHEZIA [None]
